FAERS Safety Report 17077189 (Version 2)
Quarter: 2019Q4

REPORT INFORMATION
  Report Type: Spontaneous
  Country: PT (occurrence: PT)
  Receive Date: 20191126
  Receipt Date: 20191227
  Transmission Date: 20200122
  Serious: Yes (Other)
  Sender: FDA-Public Use
  Company Number: PT-GLAXOSMITHKLINE-PT2019210069

PATIENT
  Age: 44 Year
  Sex: Female
  Weight: 58 kg

DRUGS (2)
  1. ZOREF [Suspect]
     Active Substance: CEFUROXIME AXETIL
     Indication: TOOTH EXTRACTION
     Dosage: 12H/12H
     Route: 048
     Dates: start: 20191026, end: 20191101
  2. VOLTAREN RAPID [Concomitant]
     Active Substance: DICLOFENAC POTASSIUM
     Indication: PRODUCT USED FOR UNKNOWN INDICATION
     Dosage: UNK
     Route: 048
     Dates: start: 20191026, end: 20191029

REACTIONS (4)
  - Rash [Recovering/Resolving]
  - Off label use [Recovered/Resolved]
  - Vasculitis [Recovering/Resolving]
  - Dyspnoea [Recovering/Resolving]

NARRATIVE: CASE EVENT DATE: 20191026
